FAERS Safety Report 5810954-4 (Version None)
Quarter: 2008Q3

REPORT INFORMATION
  Report Type: 
  Country: None (occurrence: None)
  Receive Date: 20080716
  Receipt Date: 20080709
  Transmission Date: 20090109
  Serious: Yes (Hospitalization, Disabling)
  Sender: FDA-Public Use
  Company Number: PHBS2007JP10095

PATIENT
  Age: 33 Year
  Sex: Male

DRUGS (2)
  1. NEORAL [Suspect]
     Indication: PEMPHIGOID
     Dosage: 300 MG/DAY
     Route: 048
     Dates: start: 20060720, end: 20061127
  2. NEORAL [Suspect]
     Dosage: 150 MG/DAY
     Route: 048
     Dates: start: 20061128, end: 20070101

REACTIONS (4)
  - CONVULSION [None]
  - LOSS OF CONSCIOUSNESS [None]
  - MUSCLE SPASMS [None]
  - STATUS EPILEPTICUS [None]
